FAERS Safety Report 10779479 (Version 3)
Quarter: 2015Q1

REPORT INFORMATION
  Report Type: Spontaneous
  Country: BR (occurrence: None)
  Receive Date: 20150206
  Receipt Date: 20150220
  Transmission Date: 20150721
  Serious: Yes (Hospitalization)
  Sender: FDA-Public Use
  Company Number: 2015FE00109

PATIENT
  Age: 64 Year
  Sex: Male

DRUGS (3)
  1. FIRMAGON [Suspect]
     Active Substance: DEGARELIX ACETATE
     Indication: PROSTATE CANCER
     Dosage: 1 TIME DAILY
     Route: 058
     Dates: start: 20140530, end: 20140530
  2. GLIFAGE [Concomitant]
     Active Substance: METFORMIN HYDROCHLORIDE
  3. VYTORIN [Concomitant]
     Active Substance: EZETIMIBE\SIMVASTATIN

REACTIONS (9)
  - Hyperaemia [None]
  - Pruritus [None]
  - Localised oedema [None]
  - Lip oedema [None]
  - Face oedema [None]
  - Erythema [None]
  - Injection site pain [None]
  - Anaphylactic reaction [None]
  - Eyelid oedema [None]

NARRATIVE: CASE EVENT DATE: 201405
